FAERS Safety Report 20122872 (Version 1)
Quarter: 2021Q4

REPORT INFORMATION
  Report Type: Spontaneous
  Country: US (occurrence: US)
  Receive Date: 20211129
  Receipt Date: 20211129
  Transmission Date: 20220303
  Serious: No
  Sender: FDA-Public Use
  Company Number: US-UCBSA-2021000384

PATIENT
  Sex: Female
  Weight: 53.968 kg

DRUGS (1)
  1. VIMPAT [Suspect]
     Active Substance: LACOSAMIDE
     Indication: Product used for unknown indication
     Dosage: UNK
     Dates: start: 202009

REACTIONS (3)
  - Dizziness [Unknown]
  - Amnesia [Unknown]
  - Unevaluable event [Unknown]
